FAERS Safety Report 17903511 (Version 2)
Quarter: 2020Q3

REPORT INFORMATION
  Report Type: Spontaneous
  Country: BE (occurrence: BE)
  Receive Date: 20200616
  Receipt Date: 20200701
  Transmission Date: 20201103
  Serious: Yes (Death)
  Sender: FDA-Public Use
  Company Number: BE-CELGENEUS-BEL-20200603340

PATIENT
  Age: 48 Year
  Sex: Male

DRUGS (5)
  1. ABRAXANE [Suspect]
     Active Substance: PACLITAXEL
     Indication: METASTASES TO PERITONEUM
     Dosage: 140 MILLIGRAM/SQ. METER
     Route: 033
     Dates: start: 20190109
  2. OXALIPLATIN. [Concomitant]
     Active Substance: OXALIPLATIN
     Indication: GASTRIC CANCER
     Route: 041
     Dates: start: 201810, end: 201905
  3. CAPECITABINE. [Concomitant]
     Active Substance: CAPECITABINE
     Indication: GASTRIC CANCER
     Route: 048
     Dates: start: 201810, end: 201905
  4. ABRAXANE [Suspect]
     Active Substance: PACLITAXEL
     Dosage: 140 MILLIGRAM/SQ. METER
     Route: 033
     Dates: start: 20190308
  5. ABRAXANE [Suspect]
     Active Substance: PACLITAXEL
     Dosage: 140 MILLIGRAM/SQ. METER
     Route: 033
     Dates: start: 20190208

REACTIONS (1)
  - Gastric cancer [Fatal]

NARRATIVE: CASE EVENT DATE: 20190626
